FAERS Safety Report 23617541 (Version 1)
Quarter: 2024Q1

REPORT INFORMATION
  Report Type: Spontaneous
  Country: US (occurrence: US)
  Receive Date: 20240311
  Receipt Date: 20240311
  Transmission Date: 20240410
  Serious: No
  Sender: FDA-Public Use
  Company Number: US-HIKMA PHARMACEUTICALS USA INC.-US-H14001-23-01614

PATIENT
  Age: 48 Year

DRUGS (3)
  1. LIDOCAINE [Suspect]
     Active Substance: LIDOCAINE
     Indication: Sedation
     Dosage: 100 MILLIGRAM
     Route: 042
     Dates: start: 20230509
  2. PROPOFOL [Concomitant]
     Active Substance: PROPOFOL
     Indication: Sedation
     Dosage: 300 MILLIGRAM
     Route: 065
     Dates: start: 20230509, end: 20230509
  3. PROPOFOL [Concomitant]
     Active Substance: PROPOFOL
     Dosage: 500 MILLIGRAM
     Route: 065
     Dates: start: 20230509, end: 20230509

REACTIONS (3)
  - Chills [Recovered/Resolved]
  - Back pain [Recovered/Resolved]
  - Headache [Unknown]

NARRATIVE: CASE EVENT DATE: 20230509
